FAERS Safety Report 5866276-9 (Version None)
Quarter: 2008Q3

REPORT INFORMATION
  Report Type: 
  Country: None (occurrence: None)
  Receive Date: 20080829
  Receipt Date: 20080819
  Transmission Date: 20090109
  Serious: Yes (Hospitalization, Other)
  Sender: FDA-Public Use
  Company Number: JP-PFIZER INC-2008071916

PATIENT
  Age: 60 Year
  Sex: Male

DRUGS (11)
  1. NORVASC [Suspect]
     Route: 048
     Dates: start: 20061120, end: 20071222
  2. LIPITOR [Suspect]
     Route: 048
     Dates: start: 20071026
  3. OLMETEC [Suspect]
     Indication: ESSENTIAL HYPERTENSION
     Route: 048
  4. ARTIST [Suspect]
     Route: 048
  5. DOXAZOSIN MESYLATE [Suspect]
     Route: 048
     Dates: start: 20061201, end: 20070301
  6. PRAVASTATIN SODIUM [Suspect]
     Route: 048
     Dates: start: 20061201, end: 20070301
  7. EUGLUCON [Suspect]
     Route: 048
  8. DIART [Suspect]
     Route: 048
  9. VOGLIBOSE [Suspect]
     Route: 048
  10. ASPIRIN [Suspect]
     Route: 048
  11. OMEPRAZOLE [Suspect]
     Route: 048

REACTIONS (1)
  - RENAL IMPAIRMENT [None]
